FAERS Safety Report 11463076 (Version 4)
Quarter: 2025Q3

REPORT INFORMATION
  Report Type: Spontaneous
  Country: EU (occurrence: EU)
  Receive Date: 20150905
  Receipt Date: 20250924
  Transmission Date: 20251020
  Serious: Yes (Hospitalization, Other)
  Sender: AUROBINDO
  Company Number: EU-AUROBINDO-AUR-APL-2015-07742

PATIENT
  Age: 62 Year
  Sex: Male

DRUGS (2)
  1. QUETIAPINE [Suspect]
     Active Substance: QUETIAPINE
     Indication: Product used for unknown indication
     Route: 065
  2. PREGABALIN [Suspect]
     Active Substance: PREGABALIN
     Indication: Product used for unknown indication
     Route: 065

REACTIONS (8)
  - Acute myocardial infarction [Recovered/Resolved]
  - Electrocardiogram abnormal [Recovered/Resolved]
  - Brugada syndrome [Unknown]
  - Chest discomfort [Unknown]
  - Coronary artery disease [Unknown]
  - Dyspnoea [Unknown]
  - Pneumonia [Unknown]
  - Electrocardiogram ST segment elevation [Recovered/Resolved]
